FAERS Safety Report 12882407 (Version 1)
Quarter: 2016Q4

REPORT INFORMATION
  Report Type: Report from Study
  Country: BR (occurrence: BR)
  Receive Date: 20161025
  Receipt Date: 20161025
  Transmission Date: 20170207
  Serious: Yes (Death, Hospitalization, Other)
  Sender: FDA-Public Use
  Company Number: PHHY2016BR110356

PATIENT
  Sex: Female
  Weight: 61 kg

DRUGS (2)
  1. EXEMESTANO [Suspect]
     Active Substance: EXEMESTANE
     Indication: BREAST CANCER METASTATIC
     Route: 065
  2. AFINITOR [Suspect]
     Active Substance: EVEROLIMUS
     Indication: BREAST CANCER METASTATIC
     Dosage: 10 MG, QD
     Route: 065
     Dates: start: 201607, end: 201608

REACTIONS (7)
  - Dyspnoea [Unknown]
  - Swelling face [Unknown]
  - Erythema [Unknown]
  - Pulmonary sepsis [Fatal]
  - Hypersensitivity [Unknown]
  - Metastases to lung [Unknown]
  - Pleural effusion [Unknown]
